FAERS Safety Report 20281780 (Version 5)
Quarter: 2022Q2

REPORT INFORMATION
  Report Type: Report from Study
  Country: US (occurrence: US)
  Receive Date: 20220103
  Receipt Date: 20220615
  Transmission Date: 20220721
  Serious: Yes (Life-Threatening, Hospitalization, Other)
  Sender: FDA-Public Use
  Company Number: US-TEVA-2021-US-1995884

PATIENT
  Age: 18 Year
  Sex: Male
  Weight: 83.3 kg

DRUGS (17)
  1. PREDNISONE [Suspect]
     Active Substance: PREDNISONE
     Indication: Acute lymphocytic leukaemia
     Dosage: 80 MILLIGRAM DAILY;
     Route: 048
     Dates: start: 20211005, end: 20211204
  2. PREDNISONE [Suspect]
     Active Substance: PREDNISONE
     Dosage: ON DAYS 1-5,29-33, 57-61 OF EACH CYCLE
     Route: 048
     Dates: start: 20210421
  3. METHOTREXATE [Suspect]
     Active Substance: METHOTREXATE
     Indication: Acute lymphocytic leukaemia
     Dosage: 15 MILLIGRAM ONCE
     Route: 037
     Dates: start: 20211005, end: 20211221
  4. METHOTREXATE [Suspect]
     Active Substance: METHOTREXATE
     Dosage: OF DAY 1 OF EACH CYCLE
     Route: 037
     Dates: start: 20201007
  5. METHOTREXATE [Suspect]
     Active Substance: METHOTREXATE
     Indication: Acute lymphocytic leukaemia
     Route: 048
     Dates: start: 20211012, end: 20220304
  6. METHOTREXATE [Suspect]
     Active Substance: METHOTREXATE
     Dosage: 1.25 MILLIGRAM DAILY;
     Route: 048
  7. VINCRISTINE [Suspect]
     Active Substance: VINCRISTINE
     Indication: Acute lymphocytic leukaemia
     Dosage: ONCE
     Route: 042
     Dates: start: 20211005, end: 20220222
  8. VINCRISTINE [Suspect]
     Active Substance: VINCRISTINE
     Dosage: ON DAY 1,29 AND 57 OF EACH CYCLE
     Route: 042
     Dates: start: 20200923
  9. RUXOLITINIB [Suspect]
     Active Substance: RUXOLITINIB
     Indication: Acute lymphocytic leukaemia
     Dosage: 200 MILLIGRAM DAILY;
     Route: 048
     Dates: start: 20211005, end: 20220304
  10. MERCAPTOPURINE [Suspect]
     Active Substance: MERCAPTOPURINE
     Indication: Acute lymphocytic leukaemia
     Route: 048
     Dates: start: 20211005, end: 20220304
  11. MERCAPTOPURINE [Suspect]
     Active Substance: MERCAPTOPURINE
     Dosage: 25 MILLIGRAM DAILY;
     Route: 065
     Dates: start: 20220222
  12. BACTRIM [Concomitant]
     Active Substance: SULFAMETHOXAZOLE\TRIMETHOPRIM
     Dates: start: 20200624
  13. ATIVAN [Concomitant]
     Active Substance: LORAZEPAM
     Dates: start: 20210521
  14. MIRALAX [Concomitant]
     Active Substance: POLYETHYLENE GLYCOL 3350
     Dates: start: 20200502
  15. ZOFRAN [Concomitant]
     Active Substance: ONDANSETRON HYDROCHLORIDE
     Dates: start: 20200502
  16. FLONASE [Concomitant]
     Active Substance: FLUTICASONE PROPIONATE
     Dates: start: 20211217
  17. XARELTO [Concomitant]
     Active Substance: RIVAROXABAN
     Route: 065
     Dates: start: 20220304

REACTIONS (5)
  - Febrile neutropenia [Recovered/Resolved with Sequelae]
  - Liver function test increased [Unknown]
  - Cytomegalovirus infection [Not Recovered/Not Resolved]
  - Clostridium difficile infection [Unknown]
  - Aspergillus infection [Recovering/Resolving]

NARRATIVE: CASE EVENT DATE: 20210101
